FAERS Safety Report 12261436 (Version 2)
Quarter: 2016Q2

REPORT INFORMATION
  Report Type: Spontaneous
  Country: FR (occurrence: FR)
  Receive Date: 20160412
  Receipt Date: 20160615
  Transmission Date: 20160815
  Serious: Yes (Hospitalization)
  Sender: FDA-Public Use
  Company Number: FR-GILEAD-2016-0207687

PATIENT
  Age: 58 Year
  Sex: Male

DRUGS (3)
  1. ZYDELIG [Suspect]
     Active Substance: IDELALISIB
     Indication: CHRONIC LYMPHOCYTIC LEUKAEMIA
     Dosage: 150 MG, BID
     Route: 048
     Dates: start: 201512, end: 20160321
  2. MABTHERA [Suspect]
     Active Substance: RITUXIMAB
     Indication: CHRONIC LYMPHOCYTIC LEUKAEMIA
     Dosage: UNK
     Route: 042
     Dates: start: 201512
  3. PREVISCAN                          /00261401/ [Suspect]
     Active Substance: PENTOXIFYLLINE
     Indication: PULMONARY EMBOLISM
     Dosage: UNK
     Route: 048
     Dates: end: 20160321

REACTIONS (4)
  - International normalised ratio increased [Unknown]
  - Gingival bleeding [Unknown]
  - Haematuria [Unknown]
  - Diarrhoea [Recovered/Resolved]

NARRATIVE: CASE EVENT DATE: 20160321
